FAERS Safety Report 16708250 (Version 3)
Quarter: 2019Q3

REPORT INFORMATION
  Report Type: Report from Study
  Country: None (occurrence: DE)
  Receive Date: 20190816
  Receipt Date: 20190823
  Transmission Date: 20191004
  Serious: Yes (Hospitalization)
  Sender: FDA-Public Use
  Company Number: DE-ABBVIE-19K-062-2887659-00

PATIENT
  Sex: Male

DRUGS (2)
  1. DUODOPA [Suspect]
     Active Substance: CARBIDOPA\LEVODOPA
     Indication: PARKINSON^S DISEASE
     Dosage: MD: 3.0 ML; CRD: 6.2 ML/HR; ED: 2.0 ML
     Route: 050
     Dates: start: 20190716, end: 201908
  2. DUODOPA [Suspect]
     Active Substance: CARBIDOPA\LEVODOPA
     Dosage: MD: 3.0 ML; CRD: 6.3 ML/HR; CRN: 4.0 ML/H; ED: 6.0 ML
     Route: 050
     Dates: start: 201908

REACTIONS (4)
  - Pneumonia aspiration [Not Recovered/Not Resolved]
  - Akinesia [Not Recovered/Not Resolved]
  - Device dislocation [Unknown]
  - Dysphagia [Not Recovered/Not Resolved]

NARRATIVE: CASE EVENT DATE: 2019
